FAERS Safety Report 10365939 (Version 1)
Quarter: 2014Q3

REPORT INFORMATION
  Report Type: Spontaneous
  Country: US (occurrence: None)
  Receive Date: 20140805
  Receipt Date: 20140805
  Transmission Date: 20150326
  Serious: Yes (Other)
  Sender: FDA-Public Use
  Company Number: None

PATIENT
  Age: 54 Year
  Sex: Male
  Weight: 95.26 kg

DRUGS (1)
  1. ALCOHOL PAD [Suspect]
     Active Substance: ISOPROPYL ALCOHOL
     Indication: FURUNCLE
     Dates: start: 20140619, end: 20140701

REACTIONS (3)
  - Product quality issue [None]
  - Product contamination [None]
  - Application site urticaria [None]

NARRATIVE: CASE EVENT DATE: 20140701
